FAERS Safety Report 8844755 (Version 5)
Quarter: 2015Q1

REPORT INFORMATION
  Report Type: Report from Study
  Country: CA (occurrence: CA)
  Receive Date: 20121017
  Receipt Date: 20150223
  Transmission Date: 20150721
  Serious: Yes (Other)
  Sender: FDA-Public Use
  Company Number: PHHY2012CA041620

PATIENT
  Sex: Female

DRUGS (4)
  1. SANDOSTATIN LAR DEPOT [Suspect]
     Active Substance: OCTREOTIDE ACETATE
     Dosage: 40 MG, QMO
     Route: 030
  2. SANDOSTATIN LAR DEPOT [Suspect]
     Active Substance: OCTREOTIDE ACETATE
     Indication: SHORT-BOWEL SYNDROME
     Dosage: 30 MG EVERY 4 WEEKS
     Route: 030
     Dates: start: 20101020
  3. SANDOSTATIN LAR DEPOT [Suspect]
     Active Substance: OCTREOTIDE ACETATE
     Dosage: 30 MG, QMO
     Route: 030
  4. NILSTAT [Concomitant]
     Active Substance: NYSTATIN
     Indication: GASTRIC DISORDER
     Route: 065

REACTIONS (8)
  - Renal impairment [Unknown]
  - Nausea [Unknown]
  - Balance disorder [Unknown]
  - Gastrointestinal infection [Unknown]
  - Dysuria [Unknown]
  - Product use issue [Unknown]
  - Rectal prolapse [Unknown]
  - Diarrhoea [Unknown]
